FAERS Safety Report 22933509 (Version 2)
Quarter: 2023Q4

REPORT INFORMATION
  Report Type: Spontaneous
  Country: JP (occurrence: JP)
  Receive Date: 20230912
  Receipt Date: 20231017
  Transmission Date: 20240110
  Serious: Yes (Hospitalization, Other)
  Sender: FDA-Public Use
  Company Number: JP-GLAXOSMITHKLINE-JP2023JPN122767

PATIENT

DRUGS (7)
  1. BENLYSTA [Suspect]
     Active Substance: BELIMUMAB
     Indication: Systemic lupus erythematosus
     Dosage: 200 MG, WE
     Route: 058
     Dates: start: 20220722
  2. BENLYSTA [Suspect]
     Active Substance: BELIMUMAB
     Dosage: UNK
  3. PREDNISOLONE [Suspect]
     Active Substance: PREDNISOLONE
     Indication: Systemic lupus erythematosus
     Dosage: 3 G
     Route: 050
     Dates: start: 20210121
  4. ASPIRIN [Concomitant]
     Active Substance: ASPIRIN
     Indication: Myocardial infarction
     Dosage: 1 DF
     Route: 050
     Dates: start: 2015
  5. BAKTAR COMBINATION GRANULES [Concomitant]
     Indication: Infection prophylaxis
     Dosage: 1 G
     Route: 050
     Dates: start: 20210121
  6. NEXIUM [Concomitant]
     Active Substance: ESOMEPRAZOLE MAGNESIUM
     Indication: Gastric ulcer
     Dosage: 1 G
     Route: 050
     Dates: start: 20210121
  7. RENIVACE TABLETS [Concomitant]
     Indication: Hypertension
     Dosage: 2.5 MG
     Route: 050
     Dates: start: 20220122

REACTIONS (4)
  - Pneumonia aspiration [Recovering/Resolving]
  - Pleural effusion [Unknown]
  - Oxygen saturation decreased [Unknown]
  - Pyrexia [Recovered/Resolved]

NARRATIVE: CASE EVENT DATE: 20221009
